FAERS Safety Report 5416378-6 (Version None)
Quarter: 2007Q3

REPORT INFORMATION
  Report Type: 
  Country: None (occurrence: None)
  Receive Date: 20070718
  Receipt Date: 20061004
  Transmission Date: 20080115
  Serious: Yes (Hospitalization)
  Sender: FDA-Public Use
  Company Number: 2006020040

PATIENT
  Age: 57 Year
  Sex: Male
  Weight: 90.7194 kg

DRUGS (2)
  1. CELEBREX [Suspect]
     Indication: BACK PAIN
     Dosage: 100 MG, ONE TO TWO TIMES, DAILY
     Dates: start: 19990301
  2. CELEBREX [Suspect]
     Indication: NECK PAIN
     Dosage: 100 MG, ONE TO TWO TIMES, DAILY
     Dates: start: 19990301

REACTIONS (1)
  - MYOCARDIAL INFARCTION [None]
